FAERS Safety Report 20681159 (Version 2)
Quarter: 2022Q2

REPORT INFORMATION
  Report Type: Spontaneous
  Country: US (occurrence: US)
  Receive Date: 20220406
  Receipt Date: 20220422
  Transmission Date: 20220721
  Serious: Yes (Hospitalization, Other)
  Sender: FDA-Public Use
  Company Number: US-GILEAD-2022-0576567

PATIENT
  Age: 33 Year
  Sex: Female
  Weight: 91.4 kg

DRUGS (35)
  1. TECARTUS [Suspect]
     Active Substance: BREXUCABTAGENE AUTOLEUCEL
     Indication: Acute lymphocytic leukaemia
     Dosage: MAXIMUM OF 1 X 10 ^8 AUTOLOGOUS ANTI CD19 CART T CELLS IN 68 ML SUSPENSION CONTAINING 5% DMSO
     Route: 042
     Dates: start: 20220311, end: 20220311
  2. ANAKINRA [Concomitant]
     Active Substance: ANAKINRA
     Indication: Prophylaxis
     Dosage: UNK UNK, BID
     Dates: start: 20220311
  3. ANAKINRA [Concomitant]
     Active Substance: ANAKINRA
     Dosage: UNK UNK, Q6H
     Dates: start: 20220311
  4. DRONABINOL [Concomitant]
     Active Substance: DRONABINOL
  5. LEVETIRACETAM [Concomitant]
     Active Substance: LEVETIRACETAM
  6. PROCHLORPERAZINE [Concomitant]
     Active Substance: PROCHLORPERAZINE
  7. VALACYCLOVIR [Concomitant]
     Active Substance: VALACYCLOVIR HYDROCHLORIDE
  8. POSACONAZOLE [Concomitant]
     Active Substance: POSACONAZOLE
  9. ONDANSETRON [Concomitant]
     Active Substance: ONDANSETRON
  10. POTASSIUM CHLORIDE [Concomitant]
     Active Substance: POTASSIUM CHLORIDE
  11. LIDOCAINE\PRILOCAINE HYDROCHLORIDE [Concomitant]
     Active Substance: LIDOCAINE\PRILOCAINE HYDROCHLORIDE
  12. OXYCODONE [Concomitant]
     Active Substance: OXYCODONE
  13. PANTOPRAZOLE [Concomitant]
     Active Substance: PANTOPRAZOLE
  14. LIDOCAINE [Concomitant]
     Active Substance: LIDOCAINE
  15. ERTAPENEM [Concomitant]
     Active Substance: ERTAPENEM
  16. ACETAMINOPHEN [Concomitant]
     Active Substance: ACETAMINOPHEN
  17. HYDROMORPHONE [Concomitant]
     Active Substance: HYDROMORPHONE
  18. PROMETHAZINE [Concomitant]
     Active Substance: PROMETHAZINE HYDROCHLORIDE
  19. TAMSULOSIN [Concomitant]
     Active Substance: TAMSULOSIN
  20. HEPARIN [Concomitant]
     Active Substance: HEPARIN SODIUM
  21. MIDODRINE [Concomitant]
     Active Substance: MIDODRINE
  22. CIPROFLOXACIN [Concomitant]
     Active Substance: CIPROFLOXACIN
  23. DOCUSATE [Concomitant]
     Active Substance: DOCUSATE
  24. ALTEPLASE [Concomitant]
     Active Substance: ALTEPLASE
  25. DIPHENHYDRAMINE [Concomitant]
     Active Substance: DIPHENHYDRAMINE
  26. SODIUM CHLORIDE [Concomitant]
     Active Substance: SODIUM CHLORIDE
  27. GENTAMICIN [Concomitant]
     Active Substance: GENTAMICIN
  28. ACETAMINOPHEN\HYDROCODONE [Concomitant]
     Active Substance: ACETAMINOPHEN\HYDROCODONE
  29. DEXAMETHASONE [Concomitant]
     Active Substance: DEXAMETHASONE
  30. FENTANYL [Concomitant]
     Active Substance: FENTANYL
  31. PROPOFOL [Concomitant]
     Active Substance: PROPOFOL
  32. PHENAZOPYRIDINE [Concomitant]
     Active Substance: PHENAZOPYRIDINE
  33. MIDAZOLAM [Concomitant]
     Active Substance: MIDAZOLAM
  34. METRONIDAZOLE [Concomitant]
     Active Substance: METRONIDAZOLE
  35. FLUCONAZOLE [Concomitant]
     Active Substance: FLUCONAZOLE

REACTIONS (6)
  - Urinary tract infection [Recovered/Resolved]
  - Cytokine release syndrome [Recovered/Resolved]
  - Pyrexia [Recovered/Resolved]
  - Pyrexia [Recovered/Resolved]
  - Hypotension [Recovered/Resolved]
  - Hypotension [Recovered/Resolved]

NARRATIVE: CASE EVENT DATE: 20220311
